FAERS Safety Report 15872107 (Version 2)
Quarter: 2023Q1

REPORT INFORMATION
  Report Type: Report from Study
  Country: US (occurrence: US)
  Receive Date: 20190126
  Receipt Date: 20230204
  Transmission Date: 20230417
  Serious: No
  Sender: FDA-Public Use
  Company Number: US-ACORDA-ACO_147862_2018

PATIENT
  Sex: Male
  Weight: 65.76 kg

DRUGS (1)
  1. AMPYRA [Suspect]
     Active Substance: DALFAMPRIDINE
     Indication: Multiple sclerosis
     Dosage: 1 DOSAGE FORM, Q 12 HRS
     Route: 048

REACTIONS (5)
  - Mental impairment [Unknown]
  - Therapy interrupted [Unknown]
  - Gait disturbance [Unknown]
  - Therapy cessation [Unknown]
  - Adverse event [Unknown]
